FAERS Safety Report 10252372 (Version 1)
Quarter: 2014Q2

REPORT INFORMATION
  Report Type: Spontaneous
  Country: PT (occurrence: PT)
  Receive Date: 20140623
  Receipt Date: 20140623
  Transmission Date: 20141212
  Serious: Yes (Hospitalization)
  Sender: FDA-Public Use
  Company Number: PT-MYLANLABS-2014S1014297

PATIENT
  Age: 41 Year
  Sex: Male

DRUGS (1)
  1. BACLOFEN [Suspect]
     Indication: QUADRIPARESIS
     Dosage: 300 MICROG/DAY FROM A PUMP, AS A CONTINUOUS INFUSION.
     Route: 037

REACTIONS (7)
  - Drug withdrawal syndrome [Recovered/Resolved]
  - Cardiac arrest [Recovered/Resolved]
  - Device leakage [Recovered/Resolved]
  - Convulsion [Recovered/Resolved]
  - Septic shock [Recovered/Resolved]
  - Cardiac disorder [Recovered/Resolved]
  - Respiratory disorder [Recovered/Resolved]
